FAERS Safety Report 16125094 (Version 3)
Quarter: 2019Q2

REPORT INFORMATION
  Report Type: Report from Study
  Country: US (occurrence: US)
  Receive Date: 20190327
  Receipt Date: 20190405
  Transmission Date: 20190711
  Serious: Yes (Hospitalization)
  Sender: FDA-Public Use
  Company Number: US-ACTELION-A-NJ2016-130857

PATIENT
  Sex: Male
  Weight: 81.63 kg

DRUGS (5)
  1. LETAIRIS [Concomitant]
     Active Substance: AMBRISENTAN
  2. TADALAFIL. [Concomitant]
     Active Substance: TADALAFIL
  3. VELETRI [Suspect]
     Active Substance: EPOPROSTENOL
     Indication: PULMONARY ARTERIAL HYPERTENSION
     Dosage: 18 NG/KG, PER MIN
     Route: 042
     Dates: start: 20160107
  4. ORENITRAM [Concomitant]
     Active Substance: TREPROSTINIL
  5. VELETRI [Suspect]
     Active Substance: EPOPROSTENOL
     Dosage: 26 NG/KG, PER MIN
     Route: 042

REACTIONS (15)
  - Feeling jittery [Unknown]
  - Lacrimal disorder [Unknown]
  - Pharyngitis streptococcal [Recovered/Resolved]
  - Myalgia [Unknown]
  - Pain in extremity [Unknown]
  - Diarrhoea [Unknown]
  - Pain in jaw [Unknown]
  - Pallor [Recovering/Resolving]
  - Muscle spasms [Unknown]
  - Dyspnoea exertional [Unknown]
  - Dizziness [Unknown]
  - Therapy change [Unknown]
  - Salivary gland disorder [Unknown]
  - Arthralgia [Unknown]
  - Musculoskeletal stiffness [Unknown]
